FAERS Safety Report 5155218-X (Version None)
Quarter: 2006Q4

REPORT INFORMATION
  Report Type: 
  Country: None (occurrence: None)
  Receive Date: 20061121
  Receipt Date: 20061110
  Transmission Date: 20070319
  Serious: Yes (Death)
  Sender: FDA-Public Use
  Company Number: US-KINGPHARMUSA00001-K200601459

PATIENT
  Age: 19 Year

DRUGS (3)
  1. MORPHINE SULFATE [Suspect]
  2. ALPRAZOLAM [Suspect]
     Route: 048
  3. MARIJUANA [Suspect]

REACTIONS (2)
  - DRUG ABUSER [None]
  - INTENTIONAL DRUG MISUSE [None]
